FAERS Safety Report 10026183 (Version 1)
Quarter: 2014Q1

REPORT INFORMATION
  Report Type: Spontaneous
  Country: None (occurrence: US)
  Receive Date: 20140320
  Receipt Date: 20140320
  Transmission Date: 20141002
  Serious: No
  Sender: FDA-Public Use
  Company Number: US-ALLERGAN-1316437US

PATIENT
  Sex: Male

DRUGS (2)
  1. LUMIGAN 0.01% [Suspect]
     Indication: GLAUCOMA
     Dosage: 2 GTT, QHS
     Route: 047
  2. ZYRTEC [Suspect]
     Indication: SEASONAL ALLERGY

REACTIONS (3)
  - Blood pressure decreased [Unknown]
  - Somnolence [Unknown]
  - Feeling abnormal [Recovered/Resolved]
